FAERS Safety Report 8921911 (Version 1)
Quarter: 2012Q4

REPORT INFORMATION
  Report Type: 
  Country: GB (occurrence: GB)
  Receive Date: 20121121
  Receipt Date: 20121121
  Transmission Date: 20130627
  Serious: Yes (Other)
  Sender: FDA-Public Use
  Company Number: GB-PFIZER INC-2012286704

PATIENT
  Age: 42 Year
  Sex: Male

DRUGS (4)
  1. SULFASALAZINE [Suspect]
     Indication: SERONEGATIVE RHEUMATOID ARTHRITIS
     Dosage: 500 mg, 1x/day for one week
     Route: 048
     Dates: start: 20120906, end: 20121024
  2. SULFASALAZINE [Suspect]
     Dosage: 500 mg, 2x/day for one week
     Route: 048
  3. SULFASALAZINE [Suspect]
     Dosage: 500 mg, 3x/day for one week
     Route: 048
  4. SULFASALAZINE [Suspect]
     Dosage: 1 g, 2x/day to continue
     Route: 048
     Dates: end: 20121024

REACTIONS (6)
  - Liver function test abnormal [Recovering/Resolving]
  - Gamma-glutamyltransferase increased [Unknown]
  - Alanine aminotransferase increased [Unknown]
  - C-reactive protein increased [Unknown]
  - Blood alkaline phosphatase increased [Unknown]
  - Hepatitis [Unknown]
